FAERS Safety Report 6245011 (Version 3)
Quarter: 2020Q3

REPORT INFORMATION
  Report Type: Report from Study
  Country: US (occurrence: US)
  Receive Date: 20070223
  Receipt Date: 20110812
  Transmission Date: 20201104
  Serious: Yes (Hospitalization)
  Sender: FDA-Public Use
  Company Number: US-JNJFOC-20070203454

PATIENT
  Age: 70 Year
  Sex: Female
  Weight: 118.39 kg

DRUGS (9)
  1. CNTO 328 [Suspect]
     Active Substance: SILTUXIMAB
     Indication: PLASMA CELL MYELOMA
     Route: 042
     Dates: start: 20070130
  2. LISINOPRIL. [Concomitant]
     Active Substance: LISINOPRIL
  3. FENTANYL. [Suspect]
     Active Substance: FENTANYL
     Indication: PAIN
     Route: 061
     Dates: end: 200702
  4. FENTANYL. [Suspect]
     Active Substance: FENTANYL
     Route: 061
     Dates: start: 200702, end: 200702
  5. VELCADE [Suspect]
     Active Substance: BORTEZOMIB
     Indication: PLASMA CELL MYELOMA
     Route: 040
     Dates: start: 20070130, end: 20070206
  6. HYDROCHLOROTHIAZIDE. [Concomitant]
     Active Substance: HYDROCHLOROTHIAZIDE
  7. ALLOPURINOL. [Concomitant]
     Active Substance: ALLOPURINOL
  8. GEMFIBROZIL. [Concomitant]
     Active Substance: GEMFIBROZIL
  9. NORCO [Concomitant]
     Active Substance: ACETAMINOPHEN\HYDROCODONE BITARTRATE

REACTIONS (1)
  - Small intestinal obstruction [Not Recovered/Not Resolved]

NARRATIVE: CASE EVENT DATE: 20070208
